FAERS Safety Report 21050974 (Version 1)
Quarter: 2022Q3

REPORT INFORMATION
  Report Type: Spontaneous
  Country: PL (occurrence: PL)
  Receive Date: 20220707
  Receipt Date: 20220707
  Transmission Date: 20221026
  Serious: Yes (Other)
  Sender: FDA-Public Use
  Company Number: PL-GILEAD-2022-0587701

PATIENT
  Age: 32 Year
  Sex: Female

DRUGS (6)
  1. EPCLUSA [Suspect]
     Active Substance: SOFOSBUVIR\VELPATASVIR
     Indication: Chronic hepatitis C
     Dosage: UNK
     Route: 065
     Dates: start: 202202, end: 202205
  2. GABITRIL [Concomitant]
     Active Substance: TIAGABINE HYDROCHLORIDE
  3. LAMOTRIGINE [Concomitant]
     Active Substance: LAMOTRIGINE
  4. QUETIAPINE [Concomitant]
     Active Substance: QUETIAPINE
  5. SYLIMARYNAL [Concomitant]
  6. OMEGA-3 FORTE [Concomitant]

REACTIONS (3)
  - Seizure [Unknown]
  - Headache [Recovered/Resolved]
  - Therapeutic response unexpected [Unknown]
